FAERS Safety Report 8027228-6 (Version None)
Quarter: 2012Q1

REPORT INFORMATION
  Report Type: 
  Country: None (occurrence: None)
  Receive Date: 20120104
  Receipt Date: 20111220
  Transmission Date: 20120608
  Serious: Yes (Hospitalization, Disabling)
  Sender: FDA-Public Use
  Company Number: JP-DEXPHARM-20112082

PATIENT
  Age: 50 Year
  Sex: Male

DRUGS (1)
  1. CHLORHEXIDINE GLUCONATE [Suspect]

REACTIONS (8)
  - CORNEAL OEDEMA [None]
  - GLAUCOMA [None]
  - CORNEAL TRANSPLANT [None]
  - CATARACT [None]
  - CONJUNCTIVAL HYPERAEMIA [None]
  - EYE PAIN [None]
  - ACCIDENTAL EXPOSURE [None]
  - CORNEAL EPITHELIUM DEFECT [None]
